FAERS Safety Report 6028858-3 (Version None)
Quarter: 2009Q1

REPORT INFORMATION
  Report Type: 
  Country: None (occurrence: None)
  Receive Date: 20090106
  Receipt Date: 20081230
  Transmission Date: 20090719
  Serious: Yes (Hospitalization, Disabling)
  Sender: FDA-Public Use
  Company Number: JP-ABBOTT-08P-087-0492271-00

PATIENT
  Age: 31 Year
  Sex: Female

DRUGS (4)
  1. CEFZON [Suspect]
     Indication: PYREXIA
     Route: 048
     Dates: start: 20071014, end: 20071015
  2. ACETAMINOPHEN [Suspect]
     Indication: PYREXIA
     Dosage: UNKNOWN
     Route: 048
     Dates: end: 20071018
  3. LOXOPROFEN [Suspect]
     Indication: RASH
     Dosage: UNKNOWN
     Route: 048
     Dates: start: 20071007, end: 20071019
  4. LEVOFLOXACIN [Suspect]
     Indication: RASH
     Dosage: UNKNOWN
     Route: 048
     Dates: start: 20071007, end: 20071014

REACTIONS (3)
  - IRITIS [None]
  - RASH ERYTHEMATOUS [None]
  - TUBULOINTERSTITIAL NEPHRITIS [None]
